FAERS Safety Report 12641694 (Version 2)
Quarter: 2016Q3

REPORT INFORMATION
  Report Type: Spontaneous
  Country: FR (occurrence: FR)
  Receive Date: 20160810
  Receipt Date: 20160822
  Transmission Date: 20161109
  Serious: Yes (Hospitalization)
  Sender: FDA-Public Use
  Company Number: FR-ABBVIE-16P-056-1698520-00

PATIENT
  Age: 9 Year
  Sex: Female

DRUGS (1)
  1. DEPAKINE [Suspect]
     Active Substance: VALPROATE SODIUM
     Indication: EPILEPSY
     Route: 048
     Dates: start: 20160617, end: 20160621

REACTIONS (2)
  - Hyperammonaemia [Unknown]
  - Prothrombin time shortened [Unknown]

NARRATIVE: CASE EVENT DATE: 20160621
